FAERS Safety Report 10986001 (Version 2)
Quarter: 2016Q1

REPORT INFORMATION
  Report Type: Report from Study
  Country: US (occurrence: US)
  Receive Date: 20150404
  Receipt Date: 20160211
  Transmission Date: 20160525
  Serious: Yes (Hospitalization)
  Sender: FDA-Public Use
  Company Number: PHEH2015US005916

PATIENT
  Sex: Female

DRUGS (1)
  1. NEORAL [Suspect]
     Active Substance: CYCLOSPORINE
     Indication: LUNG TRANSPLANT
     Dosage: 100 MG, BID
     Route: 048
     Dates: start: 20080119

REACTIONS (2)
  - Dysgraphia [Unknown]
  - Cerebrovascular accident [Unknown]
